FAERS Safety Report 7359006-5 (Version None)
Quarter: 2011Q1

REPORT INFORMATION
  Report Type: 
  Country: None (occurrence: None)
  Receive Date: 20110317
  Receipt Date: 20100914
  Transmission Date: 20110831
  Serious: Yes (Hospitalization)
  Sender: FDA-Public Use
  Company Number: US-BAYER-201018600NA

PATIENT
  Sex: Female
  Weight: 106.1 kg

DRUGS (4)
  1. FLEXERIL [Concomitant]
  2. VICODIN [Concomitant]
  3. YAZ [Suspect]
     Indication: MENORRHAGIA
     Dosage: UNK
     Route: 048
     Dates: start: 20070801, end: 20080201
  4. YASMIN [Suspect]
     Indication: POST COITAL CONTRACEPTION
     Route: 048

REACTIONS (2)
  - PULMONARY EMBOLISM [None]
  - PAIN [None]
